FAERS Safety Report 5918810-8 (Version None)
Quarter: 2008Q3

REPORT INFORMATION
  Report Type: 
  Country: None (occurrence: None)
  Receive Date: 20080909
  Receipt Date: 20070731
  Transmission Date: 20090109
  Serious: Yes (Hospitalization, Other)
  Sender: FDA-Public Use
  Company Number: 163-20785-07080086

PATIENT
  Age: 58 Year
  Sex: Male

DRUGS (2)
  1. THALOMID [Suspect]
     Indication: MULTIPLE MYELOMA
     Dosage: 100 MG, 1 IN 1 D, ORAL ; 100MG EVERY OTHER DAY, ORAL
     Route: 048
     Dates: start: 20060701, end: 20060801
  2. THALOMID [Suspect]
     Indication: MULTIPLE MYELOMA
     Dosage: 100 MG, 1 IN 1 D, ORAL ; 100MG EVERY OTHER DAY, ORAL
     Route: 048
     Dates: start: 20070101

REACTIONS (2)
  - GASTROINTESTINAL DISORDER [None]
  - SEPSIS [None]
